FAERS Safety Report 5087009-2 (Version None)
Quarter: 2006Q3

REPORT INFORMATION
  Report Type: 
  Country: None (occurrence: None)
  Receive Date: 20060821
  Receipt Date: 20060807
  Transmission Date: 20061208
  Serious: Yes (Hospitalization, Other)
  Sender: FDA-Public Use
  Company Number: 2006098956

PATIENT
  Age: 67 Year
  Sex: Male
  Weight: 67.6 kg

DRUGS (7)
  1. SUTENT [Suspect]
     Indication: MESOTHELIOMA
     Dosage: 50 MG (50 MG, 1 IN 1 D), ORAL
     Route: 048
     Dates: start: 20060718
  2. AVAPRO HCT (HYDROCHLOROTHIAZIDE, IRBESARTAN) [Concomitant]
  3. ACYCLOVIR [Concomitant]
  4. DEXAMETHASONE (DEXMETHASONE) [Concomitant]
  5. METOCLOPRAMIDE [Concomitant]
  6. MS CONTIN [Concomitant]
  7. MYLANTA [Concomitant]

REACTIONS (17)
  - ALANINE AMINOTRANSFERASE INCREASED [None]
  - BLOOD ALKALINE PHOSPHATASE INCREASED [None]
  - BLOOD BILIRUBIN INCREASED [None]
  - BLOOD CREATININE DECREASED [None]
  - BLOOD SODIUM DECREASED [None]
  - BLOOD UREA INCREASED [None]
  - CONFUSIONAL STATE [None]
  - CONVULSION [None]
  - DEHYDRATION [None]
  - FALL [None]
  - GAMMA-GLUTAMYLTRANSFERASE INCREASED [None]
  - GLOBULINS INCREASED [None]
  - MOBILITY DECREASED [None]
  - PERICARDIAL DISEASE [None]
  - PROTEIN TOTAL INCREASED [None]
  - THROMBOCYTOPENIA [None]
  - TREMOR [None]
